FAERS Safety Report 14854011 (Version 3)
Quarter: 2019Q1

REPORT INFORMATION
  Report Type: Spontaneous
  Country: GB (occurrence: GB)
  Receive Date: 20180507
  Receipt Date: 20190228
  Transmission Date: 20190417
  Serious: Yes (Other)
  Sender: FDA-Public Use
  Company Number: GB-ROCHE-2119096

PATIENT
  Age: 73 Year
  Sex: Male

DRUGS (2)
  1. VEMURAFENIB. [Suspect]
     Active Substance: VEMURAFENIB
     Indication: HAIRY CELL LEUKAEMIA
     Dosage: 240 MG, BID
     Route: 065
  2. RITUXIMAB. [Suspect]
     Active Substance: RITUXIMAB
     Indication: HAIRY CELL LEUKAEMIA
     Route: 065

REACTIONS (2)
  - Malaise [Unknown]
  - Drug resistance [Unknown]
